FAERS Safety Report 12647578 (Version 1)
Quarter: 2016Q3

REPORT INFORMATION
  Report Type: Spontaneous
  Country: TR (occurrence: TR)
  Receive Date: 20160812
  Receipt Date: 20160812
  Transmission Date: 20161109
  Serious: Yes (Hospitalization, Other)
  Sender: FDA-Public Use
  Company Number: TR-OTSUKA-2016_019707

PATIENT
  Age: 59 Year
  Sex: Male

DRUGS (2)
  1. DACOGEN [Suspect]
     Active Substance: DECITABINE
     Indication: ACUTE MYELOID LEUKAEMIA
  2. DACOGEN [Suspect]
     Active Substance: DECITABINE
     Indication: MYELODYSPLASTIC SYNDROME
     Dosage: 1-5 DAY , 1 EACH 28 DAYS 1-5 DAY , 1 EACH 28 DAYS
     Route: 065
     Dates: start: 20131216

REACTIONS (4)
  - Surgery [Unknown]
  - Bronchopulmonary aspergillosis [Unknown]
  - Intestinal ischaemia [Unknown]
  - Pneumonia [Unknown]

NARRATIVE: CASE EVENT DATE: 20131219
